FAERS Safety Report 24203560 (Version 2)
Quarter: 2024Q3

REPORT INFORMATION
  Report Type: Report from Study
  Country: GT (occurrence: GT)
  Receive Date: 20240813
  Receipt Date: 20240927
  Transmission Date: 20241017
  Serious: Yes (Other)
  Sender: EMD SERONO INC
  Company Number: GT-Merck Healthcare KGaA-2024027062

PATIENT
  Age: 10 Year
  Sex: Male

DRUGS (1)
  1. SAIZEN [Suspect]
     Active Substance: SOMATROPIN
     Indication: Growth hormone deficiency
     Route: 058
     Dates: start: 20240219

REACTIONS (4)
  - Growth accelerated [Unknown]
  - Epiphysiolysis [Recovered/Resolved]
  - Gait disturbance [Recovering/Resolving]
  - Ear infection [Recovered/Resolved]

NARRATIVE: CASE EVENT DATE: 20240401
